FAERS Safety Report 12092574 (Version 1)
Quarter: 2016Q1

REPORT INFORMATION
  Report Type: Spontaneous
  Country: US (occurrence: None)
  Receive Date: 20160218
  Receipt Date: 20160218
  Transmission Date: 20160526
  Serious: Yes (Hospitalization, Other)
  Sender: FDA-Public Use
  Company Number: None

PATIENT
  Age: 37 Year
  Sex: Female
  Weight: 81.65 kg

DRUGS (2)
  1. SIBUTRAMIN (CONTAMINATE INGREDIENT) [Suspect]
     Active Substance: SIBUTRAMINE
  2. FIT FIRM AND FABULOUS ULTIMATE HERBAL SLIMCAPS [Suspect]
     Active Substance: DIETARY SUPPLEMENT
     Indication: WEIGHT DECREASED
     Dosage: 2 A DAY DAILY TOOK TWO ONCE A DAY FOR 3 WEEKS
     Dates: start: 201506, end: 201507

REACTIONS (7)
  - Drug administration error [None]
  - Product quality issue [None]
  - Chest pain [None]
  - Dyspnoea [None]
  - Vision blurred [None]
  - Headache [None]
  - Product contamination [None]

NARRATIVE: CASE EVENT DATE: 201507
